FAERS Safety Report 8236734-0 (Version None)
Quarter: 2012Q1

REPORT INFORMATION
  Report Type: 
  Country: None (occurrence: None)
  Receive Date: 20120323
  Receipt Date: 20120313
  Transmission Date: 20120608
  Serious: Yes (Other)
  Sender: FDA-Public Use
  Company Number: ABR_00407_2012

PATIENT
  Sex: Female
  Weight: 71.6683 kg

DRUGS (13)
  1. LITHIUM CARBONATE [Suspect]
     Indication: PRODUCT USED FOR UNKNOWN INDICATION
     Dosage: (DF)
  2. ERYTHROMYCIN [Suspect]
     Indication: TOOTH EXTRACTION
     Dosage: (UNK UNKNOWN)
     Dates: start: 20040101
  3. UNSPECIFIED BIPOLAR DISORDER MEDICATIONS [Suspect]
     Indication: PRODUCT USED FOR UNKNOWN INDICATION
     Dosage: (DF)
  4. FISH OIL [Suspect]
     Indication: PRODUCT USED FOR UNKNOWN INDICATION
     Dosage: (DF)
  5. SIMVASTATIN [Concomitant]
  6. PAROXETINE HCL [Concomitant]
  7. DEPAKOTE [Suspect]
     Indication: BIPOLAR I DISORDER
     Dosage: (UNK UNKNOWN)
  8. VITAMIN D [Suspect]
     Indication: PRODUCT USED FOR UNKNOWN INDICATION
     Dosage: (DF)
  9. CALCIUM CARBONATE [Suspect]
     Indication: PRODUCT USED FOR UNKNOWN INDICATION
     Dosage: (DF)
  10. UNSPECIFIED SINUSITIS SPRAY [Suspect]
     Indication: PRODUCT USED FOR UNKNOWN INDICATION
     Dosage: (UNKNOWN)
  11. ESCITALOPRAM OXALATE [Concomitant]
  12. WELLBUTRIN [Suspect]
     Indication: PRODUCT USED FOR UNKNOWN INDICATION
     Dosage: (UNK)
     Dates: start: 20040101
  13. E-VITAMIN (NOT SPECIFIED) [Suspect]
     Indication: PRODUCT USED FOR UNKNOWN INDICATION
     Dosage: (DF)

REACTIONS (4)
  - SUICIDAL IDEATION [None]
  - DRUG INEFFECTIVE [None]
  - NAUSEA [None]
  - HYPERSENSITIVITY [None]
